FAERS Safety Report 8882066 (Version 1)
Quarter: 2012Q4

REPORT INFORMATION
  Report Type: 
  Country: FR (occurrence: FR)
  Receive Date: 20121105
  Receipt Date: 20121105
  Transmission Date: 20130627
  Serious: Yes (Hospitalization)
  Sender: FDA-Public Use
  Company Number: FR-009507513-1210FRA014380

PATIENT
  Age: 89 Year
  Sex: Female

DRUGS (17)
  1. NOROXINE [Suspect]
     Indication: URINARY TRACT INFECTION
     Dosage: UNK
     Route: 048
     Dates: start: 20120912, end: 20120917
  2. NOROXINE [Suspect]
     Indication: URINARY TRACT INFECTION
  3. OFLOXACIN [Suspect]
     Indication: URINARY TRACT INFECTION
     Dosage: UNK
     Route: 048
     Dates: start: 20120924, end: 20120926
  4. MABTHERA [Suspect]
     Indication: VASCULITIS
     Dosage: 375 mg/m2, qw
     Route: 042
     Dates: start: 20120215, end: 20120312
  5. CORDARONE [Concomitant]
     Indication: ATRIAL FIBRILLATION
     Dosage: 5 UNK, UNK
     Dates: end: 20120926
  6. CORDARONE [Concomitant]
     Dosage: 5 UNK, UNK
     Dates: start: 20121001
  7. COUMADIN [Concomitant]
     Indication: ATRIAL FIBRILLATION
     Dosage: 2 mg, UNK
  8. ATENOLOL [Concomitant]
     Indication: HYPERTENSION
     Dosage: UNK
  9. CALCIDOSE [Concomitant]
     Indication: OSTEOPOROSIS
  10. FOSAVANCE [Concomitant]
     Indication: OSTEOPOROSIS
  11. PREDNISONE [Concomitant]
  12. SIFROL [Concomitant]
  13. SERESTA [Concomitant]
  14. HYDROCORTISONE [Concomitant]
  15. KARDEGIC [Concomitant]
  16. INEXIUM [Concomitant]
  17. FOLIC ACID [Concomitant]

REACTIONS (3)
  - Leukopenia [Recovered/Resolved]
  - Agranulocytosis [Recovered/Resolved]
  - Lymphopenia [Recovered/Resolved]
